FAERS Safety Report 10196880 (Version 1)
Quarter: 2014Q2

REPORT INFORMATION
  Report Type: Spontaneous
  Country: PH (occurrence: PH)
  Receive Date: 20140527
  Receipt Date: 20140527
  Transmission Date: 20141212
  Serious: Yes (Death, Other)
  Sender: FDA-Public Use
  Company Number: PH-009507513-1405PHL011357

PATIENT
  Sex: Female

DRUGS (1)
  1. COZAAR [Suspect]
     Indication: ROUTINE HEALTH MAINTENANCE
     Dosage: 50 MG, QD
     Route: 048

REACTIONS (2)
  - Asthma [Fatal]
  - Drug administration error [Unknown]
